FAERS Safety Report 4751788-1 (Version None)
Quarter: 2005Q3

REPORT INFORMATION
  Report Type: 
  Country: None (occurrence: None)
  Receive Date: 20050823
  Receipt Date: 20050823
  Transmission Date: 20060218
  Serious: Yes (Other)
  Sender: FDA-Public Use
  Company Number: None

PATIENT
  Sex: Male
  Weight: 48.5349 kg

DRUGS (1)
  1. BUPROPION SR 150MG [Suspect]
     Indication: DEPRESSION
     Dosage: 150 MG IN 2004 SOMETIME FOR A FEW MONTHS
     Dates: start: 20040101

REACTIONS (3)
  - DEPRESSION [None]
  - DRUG INEFFECTIVE [None]
  - THERAPEUTIC RESPONSE UNEXPECTED WITH DRUG SUBSTITUTION [None]
